FAERS Safety Report 9796276 (Version 2)
Quarter: 2014Q3

REPORT INFORMATION
  Report Type: Report from Study
  Country: DE (occurrence: DE)
  Receive Date: 20140103
  Receipt Date: 20140908
  Transmission Date: 20150326
  Serious: Yes (Other)
  Sender: FDA-Public Use
  Company Number: DE-CELGENEUS-062-21660-13124255

PATIENT

DRUGS (3)
  1. CYCLOPHOSPHAMIDE. [Concomitant]
     Active Substance: CYCLOPHOSPHAMIDE
     Indication: BREAST CANCER
     Route: 065
  2. ABRAXANE [Suspect]
     Active Substance: PACLITAXEL
     Indication: BREAST CANCER
     Route: 041
  3. EPIRUBICIN [Concomitant]
     Active Substance: EPIRUBICIN
     Indication: BREAST CANCER
     Route: 065

REACTIONS (27)
  - Musculoskeletal disorder [Unknown]
  - Diarrhoea [Unknown]
  - Pyrexia [Unknown]
  - Dizziness [Unknown]
  - Leukopenia [Unknown]
  - Oesophagitis [Unknown]
  - Neuropathy peripheral [Unknown]
  - Respiratory disorder [Unknown]
  - Angiopathy [Unknown]
  - Vomiting [Unknown]
  - Mental disorder [Unknown]
  - Fatigue [Unknown]
  - Neutropenia [Unknown]
  - Unevaluable event [Unknown]
  - Pain [Unknown]
  - Anaemia [Unknown]
  - Hypertension [Unknown]
  - Embolism [Unknown]
  - Febrile neutropenia [Unknown]
  - Mucosal inflammation [Unknown]
  - Thrombocytopenia [Unknown]
  - Stomatitis [Unknown]
  - Adverse event [Unknown]
  - Haematotoxicity [Unknown]
  - Myalgia [Unknown]
  - Infection [Unknown]
  - Decreased appetite [Unknown]
